FAERS Safety Report 14995332 (Version 1)
Quarter: 2018Q2

REPORT INFORMATION
  Report Type: Spontaneous
  Country: US (occurrence: US)
  Receive Date: 20180611
  Receipt Date: 20180611
  Transmission Date: 20180711
  Serious: Yes (Other)
  Sender: FDA-Public Use
  Company Number: US-SA-2018SA080124

PATIENT
  Age: 43 Year
  Sex: Female
  Weight: 71.21 kg

DRUGS (4)
  1. ANASTROZOLE. [Concomitant]
     Active Substance: ANASTROZOLE
     Dosage: UNK
     Dates: start: 2015
  2. TAXOTERE [Suspect]
     Active Substance: DOCETAXEL
     Indication: BREAST CANCER
     Dosage: 134 MG, Q3W
     Route: 042
     Dates: start: 20140918, end: 20140918
  3. TAXOTERE [Suspect]
     Active Substance: DOCETAXEL
     Dosage: 134 MG, Q3W
     Route: 042
     Dates: start: 20150123, end: 20150123
  4. PARAPLATIN [Concomitant]
     Active Substance: CARBOPLATIN

REACTIONS (2)
  - Psychological trauma [Unknown]
  - Alopecia [Not Recovered/Not Resolved]

NARRATIVE: CASE EVENT DATE: 20150723
